FAERS Safety Report 9233300 (Version 1)
Quarter: 2013Q2

REPORT INFORMATION
  Report Type: Spontaneous
  Country: US (occurrence: US)
  Receive Date: 20130416
  Receipt Date: 20130416
  Transmission Date: 20140414
  Serious: Yes (Other)
  Sender: FDA-Public Use
  Company Number: US-BANPHARM-20130917

PATIENT
  Age: 62 Year
  Sex: Male
  Weight: 74.84 kg

DRUGS (4)
  1. ALEVE LIQUID GELS 220MG [Suspect]
     Route: 048
  2. LISINOPRIL [Concomitant]
  3. HYDROCHLOROTHIAZIDE [Concomitant]
  4. METOPROLOL TARTRATE [Concomitant]

REACTIONS (3)
  - Hypersensitivity [Recovered/Resolved]
  - Pruritus generalised [Recovering/Resolving]
  - Erythema [Recovering/Resolving]
